FAERS Safety Report 7865648-0 (Version None)
Quarter: 2011Q4

REPORT INFORMATION
  Report Type: 
  Country: None (occurrence: None)
  Receive Date: 20111028
  Receipt Date: 20110128
  Transmission Date: 20120403
  Serious: No
  Sender: FDA-Public Use
  Company Number: US-GLAXOSMITHKLINE-A0910220A

PATIENT
  Age: 80 Year
  Sex: Female

DRUGS (3)
  1. ADVAIR DISKUS 100/50 [Suspect]
     Indication: CHRONIC OBSTRUCTIVE PULMONARY DISEASE
     Dosage: 1PUFF TWICE PER DAY
     Route: 055
     Dates: start: 20110113, end: 20110114
  2. SIMVASTATIN [Concomitant]
  3. ALENDRONATE SODIUM [Concomitant]

REACTIONS (2)
  - TONGUE DISORDER [None]
  - CANDIDIASIS [None]
